FAERS Safety Report 10745121 (Version 1)
Quarter: 2015Q1

REPORT INFORMATION
  Report Type: Spontaneous
  Country: US (occurrence: None)
  Receive Date: 20150114
  Receipt Date: 20150114
  Transmission Date: 20150721
  Serious: Yes (Other)
  Sender: FDA-Public Use
  Company Number: US-SEPTODONT-201301638

PATIENT
  Age: 72 Year
  Sex: Male

DRUGS (1)
  1. MEPIVACAINE [Suspect]
     Active Substance: MEPIVACAINE\MEPIVACAINE HYDROCHLORIDE
     Indication: LOCAL ANAESTHESIA
     Route: 004
     Dates: start: 20130708, end: 20130708

REACTIONS (2)
  - Presyncope [None]
  - Dyspnoea [None]

NARRATIVE: CASE EVENT DATE: 20130708
